FAERS Safety Report 5610914-2 (Version None)
Quarter: 2008Q1

REPORT INFORMATION
  Report Type: 
  Country: None (occurrence: None)
  Receive Date: 20080201
  Receipt Date: 20080129
  Transmission Date: 20080703
  Serious: Yes (Other)
  Sender: FDA-Public Use
  Company Number: NL-BRISTOL-MYERS SQUIBB COMPANY-14060297

PATIENT
  Age: 50 Year
  Sex: Female

DRUGS (2)
  1. ABATACEPT [Suspect]
     Indication: RHEUMATOID ARTHRITIS
  2. PREDNISONE TAB [Concomitant]

REACTIONS (2)
  - EPILEPSY [None]
  - MYCOPLASMA INFECTION [None]
